FAERS Safety Report 17725397 (Version 2)
Quarter: 2021Q2

REPORT INFORMATION
  Report Type: Spontaneous
  Country: US (occurrence: US)
  Receive Date: 20200429
  Receipt Date: 20210526
  Transmission Date: 20210716
  Serious: Yes (Hospitalization, Other)
  Sender: FDA-Public Use
  Company Number: US-ASTRAZENECA-2020SE54174

PATIENT
  Age: 694 Month
  Sex: Male
  Weight: 80.3 kg

DRUGS (60)
  1. METOPROLOL TARTRATE. [Concomitant]
     Active Substance: METOPROLOL TARTRATE
  2. DESONIDE. [Concomitant]
     Active Substance: DESONIDE
  3. TOBRAMYCIN. [Concomitant]
     Active Substance: TOBRAMYCIN
  4. MOMETASONE FUROATE. [Concomitant]
     Active Substance: MOMETASONE FUROATE
  5. OSELTAMIVIR PHOSPHATE. [Concomitant]
     Active Substance: OSELTAMIVIR PHOSPHATE
  6. FLUOCINONIDE. [Concomitant]
     Active Substance: FLUOCINONIDE
  7. ATENOLOL. [Concomitant]
     Active Substance: ATENOLOL
  8. MULTIVITAMINS [Concomitant]
     Active Substance: VITAMINS
  9. CLINDAMYCIN. [Concomitant]
     Active Substance: CLINDAMYCIN
  10. SUPREP BOWEL PREP [Concomitant]
     Active Substance: MAGNESIUM SULFATE\POTASSIUM SULFATE\SODIUM SULFATE
  11. SULFAMETHOXAZOLE/AMBROXOL/TRIMETHOPRIM [Concomitant]
  12. CEFOTETAN [Concomitant]
     Active Substance: CEFOTETAN DISODIUM
  13. TETANUS [Concomitant]
     Active Substance: TETANUS ANTITOXIN
  14. TRIAMCINOLONE/NEOMYCIN/UNDECYLENIC ACID [Concomitant]
  15. CIPRO [Concomitant]
     Active Substance: CIPROFLOXACIN HYDROCHLORIDE
  16. CIALIS [Concomitant]
     Active Substance: TADALAFIL
  17. HYTRIN [Concomitant]
     Active Substance: TERAZOSIN HYDROCHLORIDE
  18. FLUZONE [Concomitant]
     Active Substance: INFLUENZA A VIRUS A/CALIFORNIA/7/2009 X-179A (H1N1) ANTIGEN (FORMALDEHYDE INACTIVATED)\INFLUENZA A VIRUS A/VICTORIA/210/2009 X-187 (H3N2) ANTIGEN (FORMALDEHYDE INACTIVATED)\INFLUENZA B VIRUS B/BRISBANE/60/2008 ANTIGEN (FORMALDEHYDE INACTIVATED)
  19. ALLOPURINOL. [Concomitant]
     Active Substance: ALLOPURINOL
  20. KETOROLAC [Concomitant]
     Active Substance: KETOROLAC TROMETHAMINE
  21. MINOCYCLINE [Concomitant]
     Active Substance: MINOCYCLINE HYDROCHLORIDE
  22. BETAMETHASONE. [Concomitant]
     Active Substance: BETAMETHASONE
  23. BYDUREON [Concomitant]
     Active Substance: EXENATIDE
  24. VANCOMYCIN [Concomitant]
     Active Substance: VANCOMYCIN
  25. EPHEDRA [Concomitant]
     Active Substance: EPHEDRA
  26. PRILOSEC [Suspect]
     Active Substance: OMEPRAZOLE MAGNESIUM
     Indication: GASTROOESOPHAGEAL REFLUX DISEASE
     Route: 048
     Dates: start: 199003, end: 201708
  27. AVODART [Concomitant]
     Active Substance: DUTASTERIDE
  28. TAMSULOSIN [Concomitant]
     Active Substance: TAMSULOSIN
  29. BACITRACIN. [Concomitant]
     Active Substance: BACITRACIN
  30. FLUOROURACIL. [Concomitant]
     Active Substance: FLUOROURACIL
  31. OXYCODONE?ACETAMINOPHEN [Concomitant]
     Active Substance: ACETAMINOPHEN\OXYCODONE HYDROCHLORIDE
  32. CELECOXIB. [Concomitant]
     Active Substance: CELECOXIB
  33. BENZONATATE. [Concomitant]
     Active Substance: BENZONATATE
  34. ETODOLAC. [Concomitant]
     Active Substance: ETODOLAC
  35. NITROGLYCERIN. [Concomitant]
     Active Substance: NITROGLYCERIN
  36. POLYETHYLENE GLYCOL [Concomitant]
     Active Substance: POLYETHYLENE GLYCOLS
  37. ALENDRONATE SODIUM. [Concomitant]
     Active Substance: ALENDRONATE SODIUM
  38. DUREZOL [Concomitant]
     Active Substance: DIFLUPREDNATE
  39. CIPRODEX [Concomitant]
     Active Substance: CIPROFLOXACIN HYDROCHLORIDE\DEXAMETHASONE
  40. VIAGRA [Concomitant]
     Active Substance: SILDENAFIL CITRATE
  41. AMITIZA [Concomitant]
     Active Substance: LUBIPROSTONE
  42. ELIQUIS [Concomitant]
     Active Substance: APIXABAN
  43. PRILOSEC [Suspect]
     Active Substance: OMEPRAZOLE MAGNESIUM
     Indication: GASTROOESOPHAGEAL REFLUX DISEASE
     Route: 048
     Dates: start: 1990, end: 2017
  44. COLCHICINE. [Concomitant]
     Active Substance: COLCHICINE
  45. DICLOFENAC [Concomitant]
     Active Substance: DICLOFENAC
  46. MUPIROCIN. [Concomitant]
     Active Substance: MUPIROCIN
  47. ACYCLOVIR. [Concomitant]
     Active Substance: ACYCLOVIR
  48. HYDROCODONE/PARACETAMOL [Concomitant]
     Active Substance: ACETAMINOPHEN\HYDROCODONE BITARTRATE
  49. TESTOSTERONE. [Concomitant]
     Active Substance: TESTOSTERONE
  50. LOSARTAN POTASSIUM. [Concomitant]
     Active Substance: LOSARTAN POTASSIUM
  51. MAXZIDE [Concomitant]
     Active Substance: HYDROCHLOROTHIAZIDE\TRIAMTERENE
  52. GLYBURIDE. [Concomitant]
     Active Substance: GLYBURIDE
  53. PRILOSEC [Suspect]
     Active Substance: OMEPRAZOLE MAGNESIUM
     Indication: GASTROOESOPHAGEAL REFLUX DISEASE
     Dosage: GENERIC
     Route: 065
  54. DOXYCYCLINE HYCLATE. [Concomitant]
     Active Substance: DOXYCYCLINE HYCLATE
  55. TRICOR [Concomitant]
     Active Substance: FENOFIBRATE
  56. LISINOPRIL. [Concomitant]
     Active Substance: LISINOPRIL
  57. AZITHROMYCIN ANHYDROUS. [Concomitant]
     Active Substance: AZITHROMYCIN ANHYDROUS
  58. OFLOXACIN. [Concomitant]
     Active Substance: OFLOXACIN
  59. ILEVRO [Concomitant]
     Active Substance: NEPAFENAC
  60. METRONIDAZOLE. [Concomitant]
     Active Substance: METRONIDAZOLE

REACTIONS (3)
  - Chronic kidney disease [Not Recovered/Not Resolved]
  - Renal failure [Unknown]
  - Gastrooesophageal reflux disease [Not Recovered/Not Resolved]

NARRATIVE: CASE EVENT DATE: 200001
